FAERS Safety Report 10269393 (Version 1)
Quarter: 2014Q3

REPORT INFORMATION
  Report Type: Spontaneous
  Country: FR (occurrence: FR)
  Receive Date: 20140701
  Receipt Date: 20140701
  Transmission Date: 20150326
  Serious: Yes (Hospitalization)
  Sender: FDA-Public Use
  Company Number: FR-EMCURE-000784

PATIENT
  Age: 58 Year
  Sex: Male

DRUGS (4)
  1. BICNU [Suspect]
     Active Substance: CARMUSTINE
     Indication: LYMPHOMA
     Route: 065
     Dates: start: 20140514
  2. ETOPOSIDE. [Suspect]
     Active Substance: ETOPOSIDE
     Indication: LYMPHOMA
     Route: 065
     Dates: start: 20140515, end: 20140518
  3. CYTARABINE/CYTARABINE HYDROCHLORIDE/CYTARABINE OCFOSFATE [Suspect]
     Active Substance: CYTARABINE
     Indication: LYMPHOMA
     Route: 042
     Dates: start: 20140515, end: 20140518
  4. ALKERAN [Suspect]
     Active Substance: MELPHALAN
     Indication: LYMPHOMA
     Route: 065
     Dates: start: 20140519

REACTIONS (4)
  - Cholestasis [Recovering/Resolving]
  - Off label use [Unknown]
  - Herpes virus infection [Recovering/Resolving]
  - Cell death [Recovering/Resolving]

NARRATIVE: CASE EVENT DATE: 20140524
